FAERS Safety Report 18907074 (Version 1)
Quarter: 2021Q1

REPORT INFORMATION
  Report Type: Spontaneous
  Country: US (occurrence: US)
  Receive Date: 20210217
  Receipt Date: 20210217
  Transmission Date: 20210420
  Serious: Yes (Other)
  Sender: FDA-Public Use
  Company Number: US-NOVEN PHARMACEUTICALS, INC.-2020US009335

PATIENT
  Age: 14 Year
  Sex: Male
  Weight: 39.91 kg

DRUGS (3)
  1. DAYTRANA [Suspect]
     Active Substance: METHYLPHENIDATE
     Dosage: 20 MG/9 HOURS, 1 PATCH DAILY
     Route: 062
  2. DAYTRANA [Suspect]
     Active Substance: METHYLPHENIDATE
     Dosage: 20 MG, 1.5 PATCHES FOR 9 HOURS DAILY
     Route: 062
  3. DAYTRANA [Suspect]
     Active Substance: METHYLPHENIDATE
     Indication: ATTENTION DEFICIT HYPERACTIVITY DISORDER
     Dosage: 30 MG/9 HOURS, 1 PATCH DAILY
     Route: 062
     Dates: start: 20200928

REACTIONS (7)
  - Device difficult to use [Not Recovered/Not Resolved]
  - Off label use [Recovered/Resolved]
  - Incorrect product administration duration [Not Recovered/Not Resolved]
  - Product administration error [Not Recovered/Not Resolved]
  - Device defective [Not Recovered/Not Resolved]
  - Wrong technique in product usage process [Recovered/Resolved]
  - No adverse event [Unknown]

NARRATIVE: CASE EVENT DATE: 2020
